FAERS Safety Report 8386395-5 (Version None)
Quarter: 2012Q2

REPORT INFORMATION
  Report Type: 
  Country: None (occurrence: None)
  Receive Date: 20120523
  Receipt Date: 20120523
  Transmission Date: 20120825
  Serious: Yes (Hospitalization)
  Sender: FDA-Public Use
  Company Number: None

PATIENT
  Age: 31 Year
  Sex: Male
  Weight: 75.2971 kg

DRUGS (2)
  1. CITALOPRAM HYDROBROMIDE [Suspect]
     Indication: ANXIETY
     Dosage: 20MG 1 PO 1 TIME
     Route: 048
     Dates: start: 20120520, end: 20120521
  2. CITALOPRAM HYDROBROMIDE [Suspect]
     Indication: DEPRESSION
     Dosage: 20MG 1 PO 1 TIME
     Route: 048
     Dates: start: 20120520, end: 20120521

REACTIONS (13)
  - DIARRHOEA [None]
  - HOSTILITY [None]
  - ANXIETY [None]
  - AGGRESSION [None]
  - INSOMNIA [None]
  - ABDOMINAL PAIN UPPER [None]
  - VOMITING [None]
  - DIZZINESS [None]
  - NAUSEA [None]
  - FEELING ABNORMAL [None]
  - HOMICIDAL IDEATION [None]
  - TREMOR [None]
  - DYSPNOEA [None]
